FAERS Safety Report 4678585-X (Version None)
Quarter: 2005Q2

REPORT INFORMATION
  Report Type: 
  Country: None (occurrence: None)
  Receive Date: 20050601
  Receipt Date: 20050517
  Transmission Date: 20051028
  Serious: Yes (Hospitalization)
  Sender: FDA-Public Use
  Company Number: US-GLAXOSMITHKLINE-A0558894A

PATIENT
  Age: 77 Year
  Sex: Female
  Weight: 53 kg

DRUGS (6)
  1. CITRUCEL REGULAR SUSPENSION [Suspect]
     Indication: CONSTIPATION
     Route: 048
     Dates: start: 20000101
  2. TOPROL-XL [Concomitant]
     Indication: HYPERTENSION
     Route: 048
  3. PRINIVIL [Concomitant]
     Indication: HYPERTENSION
     Route: 048
  4. PROCARDIA [Concomitant]
     Indication: HYPERTENSION
     Route: 048
  5. BENICAR [Concomitant]
     Indication: HYPERTENSION
     Route: 048
  6. LIPITOR [Concomitant]
     Indication: BLOOD CHOLESTEROL INCREASED
     Route: 048

REACTIONS (6)
  - BACK PAIN [None]
  - BLOOD SODIUM DECREASED [None]
  - CHEST PAIN [None]
  - CORONARY ARTERY DISEASE [None]
  - MALAISE [None]
  - PAIN IN EXTREMITY [None]
